FAERS Safety Report 12841219 (Version 1)
Quarter: 2016Q4

REPORT INFORMATION
  Report Type: Spontaneous
  Country: US (occurrence: US)
  Receive Date: 20161012
  Receipt Date: 20161012
  Transmission Date: 20170207
  Serious: Yes (Hospitalization)
  Sender: FDA-Public Use
  Company Number: US-CELGENEUS-USA-2016102568

PATIENT
  Age: 79 Year
  Sex: Male
  Weight: 74.46 kg

DRUGS (3)
  1. REVLIMID [Suspect]
     Active Substance: LENALIDOMIDE
     Route: 048
     Dates: start: 201606
  2. REVLIMID [Suspect]
     Active Substance: LENALIDOMIDE
     Indication: PLASMA CELL MYELOMA
     Route: 048
     Dates: start: 20160318
  3. REVLIMID [Suspect]
     Active Substance: LENALIDOMIDE
     Route: 048
     Dates: start: 201608, end: 20161001

REACTIONS (1)
  - Pneumonia [Unknown]

NARRATIVE: CASE EVENT DATE: 20161001
